FAERS Safety Report 13639593 (Version 1)
Quarter: 2017Q2

REPORT INFORMATION
  Report Type: Spontaneous
  Country: US (occurrence: US)
  Receive Date: 20170609
  Receipt Date: 20170609
  Transmission Date: 20170830
  Serious: No
  Sender: FDA-Public Use
  Company Number: US-ROCHE-1514667

PATIENT
  Age: 8 Year
  Sex: Male

DRUGS (7)
  1. ZONISAMIDE. [Concomitant]
     Active Substance: ZONISAMIDE
     Route: 065
  2. RUFINAMIDE [Concomitant]
     Active Substance: RUFINAMIDE
     Route: 065
  3. VALPROATE [Concomitant]
     Active Substance: VALPROIC ACID
     Dosage: CONCENTRATION 103 MCG/ML
     Route: 065
  4. CLOBAZAM [Concomitant]
     Active Substance: CLOBAZAM
     Indication: SEIZURE
     Route: 065
  5. CLONAZEPAM. [Suspect]
     Active Substance: CLONAZEPAM
     Indication: LENNOX-GASTAUT SYNDROME
     Route: 065
  6. CLONAZEPAM. [Suspect]
     Active Substance: CLONAZEPAM
     Indication: ANXIETY
     Dosage: DECREASING DOSAGE BY 0.5 MG EACH WEEK, UNTIL CLONAZEPAM WAS ENTIRELY DISCONTINUED BY THE END OF 6 WE
     Route: 065
  7. CLOBAZAM [Concomitant]
     Active Substance: CLOBAZAM
     Dosage: INCREASED WEEKLY BY 5 MG UNTIL HE REACHED 10 MG TWICE DAILY (1 MG/KG/DAY) OVER 4 WEEKS
     Route: 065

REACTIONS (2)
  - Drug ineffective [Unknown]
  - Somnolence [Recovered/Resolved]
